FAERS Safety Report 13519219 (Version 1)
Quarter: 2017Q2

REPORT INFORMATION
  Report Type: Spontaneous
  Country: US (occurrence: US)
  Receive Date: 20170505
  Receipt Date: 20170505
  Transmission Date: 20170830
  Serious: Yes (Other)
  Sender: FDA-Public Use
  Company Number: US-009507513-1704USA013869

PATIENT
  Age: 46 Year
  Sex: Female
  Weight: 79.37 kg

DRUGS (16)
  1. CYTOMEL [Concomitant]
     Active Substance: LIOTHYRONINE SODIUM
  2. UBIDECARENONE [Concomitant]
     Active Substance: UBIDECARENONE
  3. THIAMINE. [Concomitant]
     Active Substance: THIAMINE
  4. MIRAPEX [Concomitant]
     Active Substance: PRAMIPEXOLE DIHYDROCHLORIDE
  5. VYTORIN [Suspect]
     Active Substance: EZETIMIBE\SIMVASTATIN
     Dosage: DOSE: 10/20 (UNITS NOT PROVIDED)
  6. HYDROCODONE [Concomitant]
     Active Substance: HYDROCODONE
  7. DIOVAN [Concomitant]
     Active Substance: VALSARTAN
  8. ZANAFLEX [Concomitant]
     Active Substance: TIZANIDINE HYDROCHLORIDE
  9. LASIX [Concomitant]
     Active Substance: FUROSEMIDE
  10. POTASSIUM CHLORIDE. [Concomitant]
     Active Substance: POTASSIUM CHLORIDE
  11. AMBIEN CR [Concomitant]
     Active Substance: ZOLPIDEM TARTRATE
  12. MARINOL [Concomitant]
     Active Substance: DRONABINOL
  13. ACETYLCARNITINE [Concomitant]
     Active Substance: ACETYLCARNITINE
  14. CYANOCOBALAMIN. [Concomitant]
     Active Substance: CYANOCOBALAMIN
  15. COPAXONE [Suspect]
     Active Substance: GLATIRAMER ACETATE
  16. CYMBALTA [Concomitant]
     Active Substance: DULOXETINE HYDROCHLORIDE

REACTIONS (25)
  - Chronic inflammatory demyelinating polyradiculoneuropathy [Unknown]
  - Muscle spasticity [Not Recovered/Not Resolved]
  - Pain [Not Recovered/Not Resolved]
  - Musculoskeletal stiffness [Not Recovered/Not Resolved]
  - Burning sensation [Not Recovered/Not Resolved]
  - Drug ineffective [Unknown]
  - Small fibre neuropathy [Unknown]
  - Thyroxine free decreased [Unknown]
  - Fibromyalgia [Unknown]
  - Thyroxine decreased [Unknown]
  - Polyneuropathy [Unknown]
  - Weight increased [Unknown]
  - Pain in extremity [Not Recovered/Not Resolved]
  - Multiple sclerosis [Not Recovered/Not Resolved]
  - Fatigue [Not Recovered/Not Resolved]
  - Oedema [Not Recovered/Not Resolved]
  - Gait disturbance [Unknown]
  - Heart rate increased [Unknown]
  - Musculoskeletal pain [Unknown]
  - Erythromelalgia [Unknown]
  - Hypothyroidism [Unknown]
  - Hyperaesthesia [Not Recovered/Not Resolved]
  - Blood uric acid increased [Unknown]
  - Complex regional pain syndrome [Unknown]
  - Dyspnoea [Unknown]

NARRATIVE: CASE EVENT DATE: 200701
